FAERS Safety Report 19124387 (Version 2)
Quarter: 2021Q2

REPORT INFORMATION
  Report Type: Spontaneous
  Country: US (occurrence: US)
  Receive Date: 20210413
  Receipt Date: 20210426
  Transmission Date: 20210717
  Serious: No
  Sender: FDA-Public Use
  Company Number: US-BEH-2021130420

PATIENT
  Age: 56 Year
  Sex: Male

DRUGS (3)
  1. HIZENTRA [Suspect]
     Active Substance: HUMAN IMMUNOGLOBULIN G
     Indication: CHRONIC INFLAMMATORY DEMYELINATING POLYRADICULONEUROPATHY
     Dosage: 20 GRAM, QW
     Route: 058
     Dates: start: 202003
  2. HIZENTRA [Suspect]
     Active Substance: HUMAN IMMUNOGLOBULIN G
     Dosage: UNK
     Route: 058
  3. HIZENTRA [Suspect]
     Active Substance: HUMAN IMMUNOGLOBULIN G
     Dosage: 20 GRAM, QW
     Route: 058
     Dates: start: 202004

REACTIONS (7)
  - Infusion site extravasation [Not Recovered/Not Resolved]
  - Infusion site extravasation [Unknown]
  - Injection site erythema [Recovered/Resolved]
  - Anxiety [Unknown]
  - Infusion site rash [Not Recovered/Not Resolved]
  - Infusion site pruritus [Not Recovered/Not Resolved]
  - Product quality issue [Unknown]

NARRATIVE: CASE EVENT DATE: 202104
